FAERS Safety Report 8614003-4 (Version None)
Quarter: 2012Q3

REPORT INFORMATION
  Report Type: 
  Country: None (occurrence: None)
  Receive Date: 20120823
  Receipt Date: 20120814
  Transmission Date: 20120928
  Serious: Yes (Other)
  Sender: FDA-Public Use
  Company Number: US-PFIZER INC-2012197187

PATIENT
  Age: 49 Year
  Sex: Female
  Weight: 113 kg

DRUGS (4)
  1. ASPIRIN [Concomitant]
     Indication: MYOCARDIAL INFARCTION
     Dosage: 81 MG, DAILY
  2. LYRICA [Suspect]
     Indication: FIBROMYALGIA
     Dosage: 300 MG, 3X/DAY
     Dates: start: 20120601
  3. NEURONTIN [Suspect]
     Indication: PAIN
     Dosage: UNK
  4. NEURONTIN [Suspect]
     Dosage: 300 MG, DAILY
     Dates: start: 20120813

REACTIONS (4)
  - DRUG INEFFECTIVE [None]
  - PAIN IN EXTREMITY [None]
  - LIMB DISCOMFORT [None]
  - WEIGHT INCREASED [None]
